FAERS Safety Report 15924870 (Version 1)
Quarter: 2019Q1

REPORT INFORMATION
  Report Type: Spontaneous
  Country: US (occurrence: US)
  Receive Date: 20190206
  Receipt Date: 20190206
  Transmission Date: 20190417
  Serious: Yes (Life-Threatening, Hospitalization, Other)
  Sender: FDA-Public Use
  Company Number: US-SA-2019SA030151

PATIENT
  Age: 32 Year
  Sex: Male

DRUGS (4)
  1. RANITIDINE. [Suspect]
     Active Substance: RANITIDINE
     Indication: DIARRHOEA
  2. RANITIDINE. [Suspect]
     Active Substance: RANITIDINE
     Indication: ABDOMINAL PAIN UPPER
     Dosage: UNK
     Route: 048
  3. RANITIDINE. [Suspect]
     Active Substance: RANITIDINE
     Indication: NAUSEA
  4. RANITIDINE. [Suspect]
     Active Substance: RANITIDINE
     Indication: EPIGASTRIC DISCOMFORT

REACTIONS (3)
  - Chest discomfort [Recovering/Resolving]
  - Anaphylactic reaction [Recovering/Resolving]
  - Rash pruritic [Unknown]
